FAERS Safety Report 15709139 (Version 1)
Quarter: 2018Q4

REPORT INFORMATION
  Report Type: Report from Study
  Country: DE (occurrence: DE)
  Receive Date: 20181211
  Receipt Date: 20181211
  Transmission Date: 20190205
  Serious: Yes (Death, Hospitalization)
  Sender: FDA-Public Use
  Company Number: DE-OTSUKA-2018_038554

PATIENT
  Age: 77 Year
  Sex: Female

DRUGS (4)
  1. DECITABINE. [Suspect]
     Active Substance: DECITABINE
     Indication: ACUTE MYELOID LEUKAEMIA
     Dosage: 35 MG, 1 IN 1 DAY CYCLE 1
     Route: 042
     Dates: start: 20181102, end: 20181111
  2. FOSTER [Concomitant]
     Active Substance: BECLOMETHASONE\FORMOTEROL
     Indication: DYSPNOEA
     Dosage: 84.4 MG, 2 IN 1 DAY
     Route: 065
  3. VANCOMYCIN [Concomitant]
     Active Substance: VANCOMYCIN
     Indication: PYREXIA
     Dosage: 0.5 G, 1 IN 1 DAY
     Route: 042
  4. MERONEM [Concomitant]
     Active Substance: MEROPENEM
     Indication: PYREXIA
     Dosage: 1 G, 3 IN 1 DAY
     Route: 042

REACTIONS (2)
  - Respiratory failure [Fatal]
  - Lung infection [Fatal]

NARRATIVE: CASE EVENT DATE: 20181116
